FAERS Safety Report 4635690-1 (Version None)
Quarter: 2005Q2

REPORT INFORMATION
  Report Type: 
  Country: None (occurrence: None)
  Receive Date: 20050413
  Receipt Date: 20050331
  Transmission Date: 20051028
  Serious: Yes (Disabling)
  Sender: FDA-Public Use
  Company Number: HQWYE653404APR05

PATIENT
  Sex: Female

DRUGS (8)
  1. EFFEXOR XR [Suspect]
     Indication: DEPRESSIVE SYMPTOM
     Dosage: 300 MG 1X PER 1 DAY; 37.5 MG EVERY 2 DAYS
     Dates: start: 20021001, end: 20050301
  2. EFFEXOR XR [Suspect]
     Indication: SUICIDAL IDEATION
     Dosage: 300 MG 1X PER 1 DAY; 37.5 MG EVERY 2 DAYS
     Dates: start: 20021001, end: 20050301
  3. EFFEXOR XR [Suspect]
     Indication: DEPRESSIVE SYMPTOM
     Dosage: 300 MG 1X PER 1 DAY; 37.5 MG EVERY 2 DAYS
     Dates: start: 20050302
  4. EFFEXOR XR [Suspect]
     Indication: SUICIDAL IDEATION
     Dosage: 300 MG 1X PER 1 DAY; 37.5 MG EVERY 2 DAYS
     Dates: start: 20050302
  5. TRILEPTAL [Concomitant]
  6. GABAPENTIN [Concomitant]
  7. TEMAZEPAM [Concomitant]
  8. LITHOBID [Concomitant]

REACTIONS (6)
  - ACTIVITIES OF DAILY LIVING IMPAIRED [None]
  - ASTHENIA [None]
  - BIPOLAR I DISORDER [None]
  - DRUG WITHDRAWAL SYNDROME [None]
  - SOMNOLENCE [None]
  - VISUAL ACUITY REDUCED [None]
